FAERS Safety Report 14430429 (Version 1)
Quarter: 2018Q1

REPORT INFORMATION
  Report Type: Spontaneous
  Country: US (occurrence: US)
  Receive Date: 20180124
  Receipt Date: 20180124
  Transmission Date: 20180509
  Serious: No
  Sender: FDA-Public Use
  Company Number: US-ASTRAZENECA-2018SE07180

PATIENT
  Sex: Male
  Weight: 81.6 kg

DRUGS (3)
  1. CRESTOR [Suspect]
     Active Substance: ROSUVASTATIN CALCIUM
     Route: 048
  2. METOPROLOL. [Suspect]
     Active Substance: METOPROLOL
     Route: 048
  3. BRILINTA [Suspect]
     Active Substance: TICAGRELOR
     Route: 048
     Dates: start: 20180112

REACTIONS (3)
  - Body fat disorder [Unknown]
  - Mood altered [Unknown]
  - Malaise [Unknown]
